FAERS Safety Report 4393127-4 (Version None)
Quarter: 2004Q3

REPORT INFORMATION
  Report Type: 
  Country: None (occurrence: None)
  Receive Date: 20040702
  Receipt Date: 20040623
  Transmission Date: 20050211
  Serious: Yes (Hospitalization)
  Sender: FDA-Public Use
  Company Number: DE-JNJFOC-20040600014

PATIENT
  Sex: Female

DRUGS (2)
  1. DURAGESIC [Suspect]
     Dosage: TRANSDERMAL
     Route: 062
  2. VIOXX [Suspect]

REACTIONS (1)
  - PSYCHOTIC DISORDER [None]
